FAERS Safety Report 4796111-1 (Version None)
Quarter: 2005Q4

REPORT INFORMATION
  Report Type: 
  Country: None (occurrence: None)
  Receive Date: 20051007
  Receipt Date: 20050928
  Transmission Date: 20060501
  Serious: Yes (Death, Hospitalization, Other)
  Sender: FDA-Public Use
  Company Number: HQWYE846125JAN05

PATIENT
  Age: 67 Year
  Sex: Male
  Weight: 131.21 kg

DRUGS (5)
  1. RAPAMUNE [Suspect]
     Indication: PROPHYLAXIS AGAINST TRANSPLANT REJECTION
     Dosage: 6  MG 1X PER 1 DAY, ORAL
     Route: 048
     Dates: start: 20041102, end: 20050113
  2. ASPIRIN [Concomitant]
  3. PRAVACHOL [Concomitant]
  4. LEVAQUIN [Concomitant]
  5. MYCOPHENOLATE MOFETIL (MYCOPHENOLATE MOFETIL) [Concomitant]

REACTIONS (34)
  - ANASTOMOTIC STENOSIS [None]
  - BILIARY ANASTOMOSIS COMPLICATION [None]
  - BILIARY DILATATION [None]
  - BLADDER CANCER [None]
  - BLADDER NEOPLASM [None]
  - BLOOD CREATINE INCREASED [None]
  - BLOOD CREATININE INCREASED [None]
  - BLOOD TRIGLYCERIDES INCREASED [None]
  - BLOOD UREA INCREASED [None]
  - BODY TEMPERATURE INCREASED [None]
  - CATARACT [None]
  - CEREBRAL ATROPHY [None]
  - CEREBRAL INFARCTION [None]
  - COUGH [None]
  - EMBOLIC STROKE [None]
  - FATIGUE [None]
  - HAEMATOCRIT DECREASED [None]
  - HAEMOGLOBIN DECREASED [None]
  - HYDRONEPHROSIS [None]
  - HYPERCOAGULATION [None]
  - INSOMNIA [None]
  - LYMPHATIC DISORDER [None]
  - NASOPHARYNGITIS [None]
  - POST PROCEDURAL COMPLICATION [None]
  - PYELOCALIECTASIS [None]
  - RASH GENERALISED [None]
  - RASH PRURITIC [None]
  - RESPIRATORY RATE INCREASED [None]
  - SCRATCH [None]
  - SPLENOMEGALY [None]
  - TRANSITIONAL CELL CARCINOMA [None]
  - TUMOUR INVASION [None]
  - VARICES OESOPHAGEAL [None]
  - VENOUS STASIS [None]
